FAERS Safety Report 5581529-X (Version None)
Quarter: 2008Q1

REPORT INFORMATION
  Report Type: 
  Country: None (occurrence: None)
  Receive Date: 20080104
  Receipt Date: 20070831
  Transmission Date: 20080703
  Serious: Yes (Hospitalization, Other)
  Sender: FDA-Public Use
  Company Number: US-ASTRAZENECA-2006UW06955

PATIENT
  Age: 45 Year
  Sex: Male
  Weight: 92.7 kg

DRUGS (9)
  1. SEROQUEL [Suspect]
     Indication: DEPRESSION
     Route: 048
     Dates: start: 19991101
  2. SEROQUEL [Suspect]
     Indication: SLEEP DISORDER
     Route: 048
     Dates: start: 19991101
  3. METHADONE HCL [Concomitant]
     Indication: BACK PAIN
  4. TETRACYCLINE [Concomitant]
     Indication: TOOTH ABSCESS
     Dates: end: 20030401
  5. LIPITOR [Concomitant]
     Indication: HYPERLIPIDAEMIA
     Dates: start: 20010101
  6. TOPROL-XL [Concomitant]
     Indication: HYPERTENSION
  7. HYZAAR [Concomitant]
     Indication: HYPERTENSION
  8. GLUCOPHAGE [Concomitant]
  9. XANAX [Concomitant]

REACTIONS (17)
  - ATELECTASIS [None]
  - AZOTAEMIA [None]
  - BACK PAIN [None]
  - BLOOD PRESSURE INCREASED [None]
  - CEREBROVASCULAR ACCIDENT [None]
  - CHOLECYSTECTOMY [None]
  - CHOLECYSTITIS CHRONIC [None]
  - DEPRESSION [None]
  - DIABETES MELLITUS [None]
  - GASTROENTERITIS [None]
  - ORCHITIS [None]
  - PANCREATITIS [None]
  - PAROTITIS [None]
  - RESPIRATORY RATE INCREASED [None]
  - SCROTAL PAIN [None]
  - TOOTH ABSCESS [None]
  - WEIGHT INCREASED [None]
